FAERS Safety Report 8446872-5 (Version None)
Quarter: 2012Q2

REPORT INFORMATION
  Report Type: 
  Country: None (occurrence: None)
  Receive Date: 20120613
  Receipt Date: 20120613
  Transmission Date: 20120825
  Serious: Yes (Hospitalization)
  Sender: FDA-Public Use
  Company Number: None

PATIENT
  Sex: Female

DRUGS (1)
  1. ADCIRE 20 MG ELI LILLY [Suspect]
     Indication: PULMONARY ARTERIAL HYPERTENSION
     Dosage: 40 MG DAILY PO
     Route: 048
     Dates: start: 20100514, end: 20120514

REACTIONS (3)
  - LOSS OF CONSCIOUSNESS [None]
  - DEHYDRATION [None]
  - BLOOD PRESSURE DECREASED [None]
